FAERS Safety Report 6297782-3 (Version None)
Quarter: 2009Q3

REPORT INFORMATION
  Report Type: 
  Country: None (occurrence: None)
  Receive Date: 20090804
  Receipt Date: 20090804
  Transmission Date: 20100115
  Serious: Yes (Hospitalization)
  Sender: FDA-Public Use
  Company Number: None

PATIENT
  Age: 30 Year
  Sex: Male
  Weight: 79.3795 kg

DRUGS (1)
  1. ASACOL [Suspect]
     Indication: COLITIS ULCERATIVE
     Dosage: 800 MG, 3 TIMES DAILY, PO
     Route: 048
     Dates: start: 20081120, end: 20090803

REACTIONS (4)
  - ABDOMINAL DISTENSION [None]
  - DIARRHOEA [None]
  - FLATULENCE [None]
  - RECTAL HAEMORRHAGE [None]
